FAERS Safety Report 5008887-9 (Version None)
Quarter: 2006Q2

REPORT INFORMATION
  Report Type: 
  Country: None (occurrence: None)
  Receive Date: 20060519
  Receipt Date: 20060512
  Transmission Date: 20061013
  Serious: Yes (Disabling, Other)
  Sender: FDA-Public Use
  Company Number: 27536

PATIENT
  Age: 30 Year
  Sex: Female

DRUGS (1)
  1. CYTARABINE FOR INJ. USP 100MG - BEDFORD LABS, INC. [Suspect]
     Indication: ACUTE MYELOID LEUKAEMIA
     Dates: start: 20020301, end: 20020307

REACTIONS (3)
  - MENINGITIS BACTERIAL [None]
  - PLATELET COUNT DECREASED [None]
  - WHITE BLOOD CELL COUNT DECREASED [None]
